FAERS Safety Report 12196551 (Version 1)
Quarter: 2016Q1

REPORT INFORMATION
  Report Type: Spontaneous
  Country: BR (occurrence: BR)
  Receive Date: 20160321
  Receipt Date: 20160321
  Transmission Date: 20160526
  Serious: Yes (Other)
  Sender: FDA-Public Use
  Company Number: BR-PFIZER INC-2016141185

PATIENT
  Age: 63 Year
  Sex: Female
  Weight: 75 kg

DRUGS (4)
  1. NORVASC [Suspect]
     Active Substance: AMLODIPINE BESYLATE
     Indication: HYPERTENSION
     Dosage: 5 MG, ONCE DAILY
     Dates: start: 2011, end: 20160301
  2. ACERTIL [Suspect]
     Active Substance: PERINDOPRIL ARGININE
     Indication: HYPERTENSION
     Dosage: UNK
     Dates: start: 2013
  3. CRESTOR [Suspect]
     Active Substance: ROSUVASTATIN CALCIUM
     Indication: BLOOD CHOLESTEROL INCREASED
     Dosage: 5 MG, UNK
     Dates: start: 2013, end: 201603
  4. FRONTAL [Concomitant]
     Active Substance: ALPRAZOLAM
     Indication: SLEEP DISORDER
     Dosage: 1 MG, DAILY (BEFORE SLEEPING)
     Dates: end: 2015

REACTIONS (11)
  - Weight decreased [Unknown]
  - Oesophagitis [Recovering/Resolving]
  - Hypersensitivity [Unknown]
  - Decreased appetite [Unknown]
  - Gastritis [Recovering/Resolving]
  - Malaise [Recovering/Resolving]
  - Flatulence [Unknown]
  - Nausea [Unknown]
  - Helicobacter gastritis [Recovering/Resolving]
  - Gastrooesophageal reflux disease [Recovering/Resolving]
  - Intentional product misuse [Unknown]

NARRATIVE: CASE EVENT DATE: 201510
